FAERS Safety Report 11777925 (Version 1)
Quarter: 2015Q4

REPORT INFORMATION
  Report Type: Spontaneous
  Country: LB (occurrence: LB)
  Receive Date: 20151125
  Receipt Date: 20151125
  Transmission Date: 20160304
  Serious: Yes (Death, Hospitalization)
  Sender: FDA-Public Use
  Company Number: LB-SA-2015SA191542

PATIENT
  Age: 51 Year
  Sex: Male

DRUGS (4)
  1. CISPLATIN. [Suspect]
     Active Substance: CISPLATIN
     Dosage: EVERY 15 DAYS
     Route: 042
     Dates: start: 20081028, end: 20081028
  2. CISPLATIN. [Suspect]
     Active Substance: CISPLATIN
     Dosage: EVERY 15 DAYS
     Route: 042
     Dates: start: 20081117, end: 20081117
  3. TAXOTERE [Suspect]
     Active Substance: DOCETAXEL
     Dosage: EVERY 15 DAYS
     Route: 042
     Dates: start: 20081028, end: 20081028
  4. TAXOTERE [Suspect]
     Active Substance: DOCETAXEL
     Route: 042
     Dates: start: 20081117, end: 20091117

REACTIONS (1)
  - Pneumonia [Fatal]

NARRATIVE: CASE EVENT DATE: 20081224
